FAERS Safety Report 25516711 (Version 1)
Quarter: 2025Q3

REPORT INFORMATION
  Report Type: Report from Study
  Country: US (occurrence: US)
  Receive Date: 20250704
  Receipt Date: 20250704
  Transmission Date: 20251020
  Serious: Yes (Other)
  Sender: ABBVIE
  Company Number: US-ABBVIE-6352731

PATIENT
  Age: 49 Year
  Sex: Female

DRUGS (1)
  1. SKYRIZI [Suspect]
     Active Substance: RISANKIZUMAB-RZAA
     Indication: Product used for unknown indication
     Route: 058
     Dates: start: 20210820

REACTIONS (13)
  - Pharyngeal haemorrhage [Unknown]
  - Fall [Unknown]
  - Head injury [Unknown]
  - Skin abrasion [Unknown]
  - Skin laceration [Unknown]
  - Dysphonia [Unknown]
  - Somnolence [Unknown]
  - Craniofacial fracture [Unknown]
  - Back injury [Unknown]
  - Spinal column injury [Unknown]
  - Face injury [Unknown]
  - Fall [Unknown]
  - Fall [Unknown]

NARRATIVE: CASE EVENT DATE: 20250101
